FAERS Safety Report 7240706-2 (Version None)
Quarter: 2011Q1

REPORT INFORMATION
  Report Type: 
  Country: None (occurrence: None)
  Receive Date: 20110124
  Receipt Date: 20100610
  Transmission Date: 20110831
  Serious: No
  Sender: FDA-Public Use
  Company Number: US-KINGPHARMUSA00001-K201000751

PATIENT
  Age: 76 Year
  Sex: Female
  Weight: 70.295 kg

DRUGS (8)
  1. TRIAMTERENE [Concomitant]
     Dosage: UNK
  2. POTASSIUM [Concomitant]
     Dosage: UNK
  3. DILTIAZEM HYDROCHLORIDE [Concomitant]
  4. ASCORBIC ACID [Concomitant]
  5. LAMICTAL [Concomitant]
     Indication: CONVULSION
     Dosage: UNK
  6. ACTOS [Concomitant]
     Indication: TYPE 2 DIABETES MELLITUS
     Dosage: UNK
  7. EPIPEN [Suspect]
     Indication: ALLERGY TO ARTHROPOD BITE
     Dosage: 0.3 MG, SINGLE
     Route: 030
     Dates: start: 20100609, end: 20100609
  8. CALCIUM [Concomitant]

REACTIONS (2)
  - DRUG INEFFECTIVE [None]
  - CHILLS [None]
